FAERS Safety Report 8914314 (Version 1)
Quarter: 2012Q4

REPORT INFORMATION
  Report Type: 
  Country: FR (occurrence: FR)
  Receive Date: 20121119
  Receipt Date: 20121119
  Transmission Date: 20130627
  Serious: Yes (Other)
  Sender: FDA-Public Use
  Company Number: FR-JNJFOC-20121105324

PATIENT

DRUGS (3)
  1. REMICADE [Suspect]
     Indication: COLITIS ULCERATIVE
     Route: 042
  2. IMUREL [Suspect]
     Indication: COLITIS ULCERATIVE
     Route: 065
  3. IMUREL [Suspect]
     Indication: COLITIS ULCERATIVE
     Route: 065

REACTIONS (3)
  - Mean cell volume increased [Unknown]
  - Lymphocyte count decreased [Unknown]
  - White blood cell count decreased [Unknown]
